FAERS Safety Report 15160090 (Version 2)
Quarter: 2018Q3

REPORT INFORMATION
  Report Type: Report from Study
  Country: US (occurrence: US)
  Receive Date: 20180718
  Receipt Date: 20180816
  Transmission Date: 20181010
  Serious: Yes (Hospitalization, Other)
  Sender: FDA-Public Use
  Company Number: US-GILEAD-2018-0349986

PATIENT
  Age: 50 Year
  Sex: Female
  Weight: 100.68 kg

DRUGS (2)
  1. IDELALISIB [Suspect]
     Active Substance: IDELALISIB
     Indication: NON-HODGKIN^S LYMPHOMA
     Dosage: 150 MG, BID
     Route: 048
     Dates: start: 20171201, end: 20180625
  2. RITUXAN [Concomitant]
     Active Substance: RITUXIMAB
     Dosage: UNK, WEEKLY X4 THEN Q2 MONTH
     Dates: start: 20180430

REACTIONS (4)
  - Acute respiratory failure [Unknown]
  - Pneumonitis [Unknown]
  - Transplant [Unknown]
  - Clostridium difficile infection [Recovered/Resolved]

NARRATIVE: CASE EVENT DATE: 20180612
